FAERS Safety Report 24284117 (Version 1)
Quarter: 2024Q3

REPORT INFORMATION
  Report Type: Report from Study
  Country: US (occurrence: US)
  Receive Date: 20240905
  Receipt Date: 20240905
  Transmission Date: 20241017
  Serious: Yes (Hospitalization)
  Sender: DECIPHERA PHARMACEUTICALS
  Company Number: US-DECIPHERA PHARMACEUTICALS LLC-2024US000758

PATIENT
  Age: 43 Year
  Sex: Female
  Weight: 61.7 kg

DRUGS (2)
  1. QINLOCK [Suspect]
     Active Substance: RIPRETINIB
     Indication: Gastrointestinal stromal tumour
     Dosage: 100 MILLIGRAM, QD
     Route: 048
     Dates: start: 20201125
  2. QINLOCK [Suspect]
     Active Substance: RIPRETINIB
     Dosage: 100 MILLIGRAM, QD (OFF MEDICATION FOR A WEEK)
     Route: 048

REACTIONS (4)
  - Chest pain [Unknown]
  - Ascites [Unknown]
  - Transfusion [Unknown]
  - Anorectal disorder [Unknown]
